FAERS Safety Report 8307209-5 (Version None)
Quarter: 2012Q2

REPORT INFORMATION
  Report Type: 
  Country: None (occurrence: None)
  Receive Date: 20120420
  Receipt Date: 20120417
  Transmission Date: 20120825
  Serious: Yes (Life-Threatening, Hospitalization, Disabling)
  Sender: FDA-Public Use
  Company Number: 2011SP056189

PATIENT
  Age: 32 Year
  Sex: Female
  Weight: 109.7705 kg

DRUGS (1)
  1. NUVARING [Suspect]
     Indication: CONTRACEPTION
     Dates: start: 20090101, end: 20091201

REACTIONS (6)
  - PNEUMONIA [None]
  - BRONCHOSPASM [None]
  - PULMONARY EMBOLISM [None]
  - RESTLESSNESS [None]
  - BRONCHITIS [None]
  - DEEP VEIN THROMBOSIS [None]
